FAERS Safety Report 18886616 (Version 2)
Quarter: 2021Q1

REPORT INFORMATION
  Report Type: Spontaneous
  Country: EG (occurrence: EG)
  Receive Date: 20210212
  Receipt Date: 20210224
  Transmission Date: 20210420
  Serious: Yes (Death, Hospitalization)
  Sender: FDA-Public Use
  Company Number: EG-JNJFOC-20210220878

PATIENT
  Age: 65 Year
  Sex: Male

DRUGS (3)
  1. ZOLADEX [Concomitant]
     Active Substance: GOSERELIN ACETATE
     Route: 065
  2. DENOSUMAB [Concomitant]
     Active Substance: DENOSUMAB
     Route: 065
  3. ERLEADA [Suspect]
     Active Substance: APALUTAMIDE
     Indication: PRODUCT USED FOR UNKNOWN INDICATION
     Route: 048
     Dates: start: 202101

REACTIONS (10)
  - Haematoma [Unknown]
  - Gastritis [Unknown]
  - Haemorrhage intracranial [Unknown]
  - Thrombocytopenia [Unknown]
  - Neurological symptom [Unknown]
  - Haemorrhage [Unknown]
  - Death [Fatal]
  - Cerebral haemorrhage [Unknown]
  - Rectal haemorrhage [Unknown]
  - Anaemia [Unknown]

NARRATIVE: CASE EVENT DATE: 20210121
